FAERS Safety Report 9383440 (Version 1)
Quarter: 2013Q3

REPORT INFORMATION
  Report Type: Spontaneous
  Country: US (occurrence: US)
  Receive Date: 20130704
  Receipt Date: 20130704
  Transmission Date: 20140515
  Serious: No
  Sender: FDA-Public Use
  Company Number: US-B.I. PHARMACEUTICALS,INC./RIDGEFIELD-2013-BI-18651BP

PATIENT
  Age: 58 Year
  Sex: Female

DRUGS (6)
  1. COMBIVENT [Suspect]
     Indication: HYPERSENSITIVITY
     Dosage: STRENGTH: 20 MCG / 100 MCG; DAILY DOSE: 80 MCG/ 400 MCG
     Route: 055
     Dates: start: 20130515
  2. METFORMIN [Concomitant]
     Indication: DIABETES MELLITUS
     Dosage: 2000 MG
     Route: 048
  3. PAXIL [Concomitant]
     Indication: ANXIETY
     Dosage: 20 MG
     Route: 048
  4. CRESTOR [Concomitant]
     Indication: BLOOD CHOLESTEROL INCREASED
     Dosage: 20 MG
     Route: 048
  5. VESICARE [Concomitant]
     Dosage: 5 MG
     Route: 048
  6. GLIMEPIRIDE [Concomitant]
     Dosage: 2 MG
     Route: 048

REACTIONS (2)
  - Drug ineffective [Not Recovered/Not Resolved]
  - Dyspnoea [Not Recovered/Not Resolved]
